FAERS Safety Report 7656422-9 (Version None)
Quarter: 2011Q3

REPORT INFORMATION
  Report Type: 
  Country: None (occurrence: None)
  Receive Date: 20110804
  Receipt Date: 20110729
  Transmission Date: 20111222
  Serious: Yes (Hospitalization)
  Sender: FDA-Public Use
  Company Number: JP-GLAXOSMITHKLINE-B0736475A

PATIENT
  Sex: Male

DRUGS (3)
  1. LAMICTAL [Suspect]
     Indication: BIPOLAR DISORDER
     Dosage: 25MG PER DAY
     Route: 048
     Dates: end: 20110722
  2. LITHIUM CARBONATE [Concomitant]
     Dosage: 600MG PER DAY
     Route: 048
  3. DEPAKENE [Concomitant]
     Dosage: 400MG PER DAY
     Route: 048

REACTIONS (2)
  - OVERDOSE [None]
  - STEVENS-JOHNSON SYNDROME [None]
